FAERS Safety Report 21477161 (Version 2)
Quarter: 2022Q4

REPORT INFORMATION
  Report Type: Spontaneous
  Country: US (occurrence: None)
  Receive Date: 20221019
  Receipt Date: 20221027
  Transmission Date: 20230113
  Serious: Yes (Other)
  Sender: FDA-Public Use
  Company Number: US-ROCHE-3200472

PATIENT
  Age: 50 Year
  Sex: Female
  Weight: 73.9 kg

DRUGS (3)
  1. GAVRETO [Suspect]
     Active Substance: PRALSETINIB
     Indication: Thyroid cancer
     Route: 048
     Dates: start: 20220913, end: 20221004
  2. SENNAE [Concomitant]
     Indication: Constipation
     Dosage: 8.6 TAB
     Route: 048
     Dates: start: 20221007
  3. IODINE [Concomitant]
     Active Substance: IODINE
     Indication: Sacroiliitis
     Route: 062
     Dates: start: 20221007

REACTIONS (11)
  - Sacral pain [Unknown]
  - Arthritis [Unknown]
  - Oedema [Unknown]
  - Pain in jaw [Unknown]
  - Intracranial pressure increased [Unknown]
  - Groin pain [Unknown]
  - Arthralgia [Unknown]
  - Pain [Unknown]
  - Feeling abnormal [Unknown]
  - Walking aid user [Unknown]
  - Fatigue [Unknown]

NARRATIVE: CASE EVENT DATE: 20221001
